FAERS Safety Report 21533471 (Version 1)
Quarter: 2022Q4

REPORT INFORMATION
  Report Type: Report from Study
  Country: IL (occurrence: IL)
  Receive Date: 20221101
  Receipt Date: 20221101
  Transmission Date: 20230113
  Serious: Yes (Death)
  Sender: FDA-Public Use
  Company Number: IL-NOVARTISPH-NVSC2022IL245130

PATIENT
  Age: 75 Year
  Sex: Female

DRUGS (1)
  1. KISQALI [Suspect]
     Active Substance: RIBOCICLIB
     Indication: Breast cancer
     Dosage: 600 MG, QD
     Route: 048
     Dates: start: 20220801, end: 20220808

REACTIONS (4)
  - Death [Fatal]
  - Pain [Unknown]
  - Asthenia [Unknown]
  - Dizziness [Unknown]
